FAERS Safety Report 19998991 (Version 1)
Quarter: 2021Q4

REPORT INFORMATION
  Report Type: Spontaneous
  Country: US (occurrence: US)
  Receive Date: 20211027
  Receipt Date: 20211027
  Transmission Date: 20220303
  Serious: No
  Sender: FDA-Public Use
  Company Number: US-SUN PHARMACEUTICAL INDUSTRIES LTD-2021R1-278031

PATIENT
  Sex: Male

DRUGS (1)
  1. RIOMET [Suspect]
     Active Substance: METFORMIN HYDROCHLORIDE
     Indication: Product used for unknown indication
     Dosage: UNK(ORAL SOLUTION)
     Route: 065

REACTIONS (1)
  - Drug ineffective [Unknown]
